FAERS Safety Report 13335119 (Version 1)
Quarter: 2017Q1

REPORT INFORMATION
  Report Type: Spontaneous
  Country: DE (occurrence: DE)
  Receive Date: 20170315
  Receipt Date: 20170315
  Transmission Date: 20170428
  Serious: Yes (Hospitalization, Other)
  Sender: FDA-Public Use
  Company Number: DE-ALVOGEN-2017-ALVOGEN-091718

PATIENT
  Age: 51 Year
  Sex: Female

DRUGS (1)
  1. BUPROPION. [Suspect]
     Active Substance: BUPROPION
     Indication: SUICIDE ATTEMPT

REACTIONS (11)
  - Hypotension [Unknown]
  - Ileus paralytic [Unknown]
  - Coma [Recovered/Resolved with Sequelae]
  - Generalised tonic-clonic seizure [Recovered/Resolved]
  - Depressed level of consciousness [Unknown]
  - Agitation [Unknown]
  - Electrocardiogram QT prolonged [Unknown]
  - Toxic encephalopathy [Recovering/Resolving]
  - Myoclonus [Recovered/Resolved]
  - Intentional overdose [Recovered/Resolved with Sequelae]
  - Somnolence [Unknown]
